FAERS Safety Report 6190403-X (Version None)
Quarter: 2009Q2

REPORT INFORMATION
  Report Type: 
  Country: None (occurrence: None)
  Receive Date: 20090514
  Receipt Date: 20090511
  Transmission Date: 20091009
  Serious: Yes (Other)
  Sender: FDA-Public Use
  Company Number: B0573943A

PATIENT
  Age: 8 Year
  Sex: Female

DRUGS (2)
  1. LAMICTIN [Suspect]
     Indication: DRUG USE FOR UNKNOWN INDICATION
     Route: 065
     Dates: start: 20081101
  2. TOPIRAMATE [Concomitant]
     Route: 065

REACTIONS (4)
  - AGGRESSION [None]
  - DISTURBANCE IN ATTENTION [None]
  - DRY MOUTH [None]
  - PROTRUSION TONGUE [None]
